FAERS Safety Report 18259302 (Version 10)
Quarter: 2025Q2

REPORT INFORMATION
  Report Type: Spontaneous
  Country: US (occurrence: US)
  Receive Date: 20200911
  Receipt Date: 20250421
  Transmission Date: 20250717
  Serious: Yes (Other)
  Sender: PFIZER
  Company Number: US-PFIZER INC-2020351811

PATIENT
  Age: 83 Year
  Sex: Male
  Weight: 71.67 kg

DRUGS (4)
  1. VYNDAMAX [Suspect]
     Active Substance: TAFAMIDIS
     Indication: Cardiac disorder
  2. VYNDAMAX [Suspect]
     Active Substance: TAFAMIDIS
     Indication: Amyloidosis
     Dosage: 61 MG, DAILY (1 BY MOUTH EVERY DAY)
     Route: 048
  3. VYNDAMAX [Suspect]
     Active Substance: TAFAMIDIS
     Dosage: 61 MG, 1X/DAY (ORALLY ONCE DAILY)
     Route: 048
  4. INDACIL [Concomitant]
     Indication: Cardiac disorder

REACTIONS (4)
  - Hernia [Unknown]
  - Intentional dose omission [Unknown]
  - Gait disturbance [Unknown]
  - Confusional state [Unknown]

NARRATIVE: CASE EVENT DATE: 20220101
